FAERS Safety Report 5110109-5 (Version None)
Quarter: 2006Q3

REPORT INFORMATION
  Report Type: 
  Country: None (occurrence: None)
  Receive Date: 20060731
  Receipt Date: 20060628
  Transmission Date: 20061208
  Serious: No
  Sender: FDA-Public Use
  Company Number: 2006PV016563

PATIENT
  Age: 47 Year
  Sex: Female
  Weight: 92.9874 kg

DRUGS (11)
  1. BYETTA [Suspect]
     Indication: DIABETES MELLITUS NON-INSULIN-DEPENDENT
     Dosage: SEE IMAGE
     Route: 058
     Dates: start: 20060401, end: 20060528
  2. BYETTA [Suspect]
     Indication: DIABETES MELLITUS NON-INSULIN-DEPENDENT
     Dosage: SEE IMAGE
     Route: 058
     Dates: start: 20060529, end: 20060625
  3. BYETTA [Suspect]
     Indication: DIABETES MELLITUS NON-INSULIN-DEPENDENT
     Dosage: SEE IMAGE
     Route: 058
     Dates: start: 20060627
  4. PROTONIX [Concomitant]
  5. PRILOSEC [Concomitant]
  6. ACIPHEX [Concomitant]
  7. TAGAMET [Concomitant]
  8. PEPCID [Concomitant]
  9. PEPTO-BISMOL [Concomitant]
  10. LEXAPRO [Concomitant]
  11. EFFEXOR XR [Concomitant]

REACTIONS (3)
  - ASTHENIA [None]
  - NAUSEA [None]
  - WEIGHT DECREASED [None]
